FAERS Safety Report 5517819-6 (Version None)
Quarter: 2007Q4

REPORT INFORMATION
  Report Type: 
  Country: None (occurrence: None)
  Receive Date: 20071113
  Receipt Date: 20071029
  Transmission Date: 20080405
  Serious: Yes (Other)
  Sender: FDA-Public Use
  Company Number: 2007SP022110

PATIENT
  Age: 77 Year
  Sex: Female

DRUGS (3)
  1. MIRALAX [Suspect]
     Indication: CONSTIPATION
     Dosage: PO
     Route: 048
     Dates: start: 20071027, end: 20071028
  2. COLACE [Concomitant]
  3. DIABETES MEDICATIONS [Concomitant]

REACTIONS (5)
  - HAEMATOCHEZIA [None]
  - INCISION SITE HAEMORRHAGE [None]
  - PHARMACEUTICAL PRODUCT COMPLAINT [None]
  - POOR QUALITY DRUG ADMINISTERED [None]
  - RECTAL TENESMUS [None]
